FAERS Safety Report 5616590-7 (Version None)
Quarter: 2008Q1

REPORT INFORMATION
  Report Type: 
  Country: None (occurrence: None)
  Receive Date: 20080207
  Receipt Date: 20070822
  Transmission Date: 20080703
  Serious: No
  Sender: FDA-Public Use
  Company Number: A0674740A

PATIENT
  Age: 49 Year
  Sex: Male

DRUGS (2)
  1. PAXIL CR [Suspect]
     Indication: DRUG USE FOR UNKNOWN INDICATION
     Dosage: 37.5MG IN THE MORNING
     Route: 048
     Dates: start: 20050101
  2. DEPAKOTE ER [Concomitant]
     Dosage: 1000MG AT NIGHT

REACTIONS (3)
  - DRUG INEFFECTIVE [None]
  - EUPHORIC MOOD [None]
  - MEDICATION ERROR [None]
